FAERS Safety Report 7807885-7 (Version None)
Quarter: 2011Q4

REPORT INFORMATION
  Report Type: 
  Country: None (occurrence: None)
  Receive Date: 20111011
  Receipt Date: 20110926
  Transmission Date: 20120403
  Serious: Yes (Hospitalization)
  Sender: FDA-Public Use
  Company Number: GR-ARROW GEN-2011-16105

PATIENT
  Age: 76 Year
  Sex: Female

DRUGS (1)
  1. SERTRALINE HYDROCHLORIDE [Suspect]
     Indication: DYSTHYMIC DISORDER

REACTIONS (1)
  - EOSINOPHILIC PNEUMONIA [None]
